FAERS Safety Report 8250108-8 (Version None)
Quarter: 2012Q1

REPORT INFORMATION
  Report Type: 
  Country: None (occurrence: None)
  Receive Date: 20120319
  Receipt Date: 20110223
  Transmission Date: 20120608
  Serious: Yes (Hospitalization)
  Sender: FDA-Public Use
  Company Number: 837503

PATIENT
  Age: 43 Year
  Sex: Female
  Weight: 51.7 kg

DRUGS (1)
  1. HEPARIN SODIUM [Suspect]
     Indication: ACUTE MYOCARDIAL INFARCTION
     Dosage: 50 UNITS/ML, CONT. IV, UNKNOWN, INTRAVENOUS DRIP
     Route: 041
     Dates: start: 20110222, end: 20110223

REACTIONS (2)
  - DRUG INEFFECTIVE [None]
  - PRODUCT MEASURED POTENCY ISSUE [None]
